FAERS Safety Report 22250166 (Version 1)
Quarter: 2023Q2

REPORT INFORMATION
  Report Type: Spontaneous
  Country: CA (occurrence: CA)
  Receive Date: 20230425
  Receipt Date: 20230425
  Transmission Date: 20230722
  Serious: Yes (Other)
  Sender: FDA-Public Use
  Company Number: CA-002147023-NVSC2023CA089508

PATIENT
  Age: 48 Year
  Sex: Male

DRUGS (1)
  1. ADALIMUMAB [Suspect]
     Active Substance: ADALIMUMAB
     Indication: Colitis ulcerative
     Dosage: 40 MG
     Route: 058

REACTIONS (4)
  - Colitis ulcerative [Unknown]
  - Product dose omission issue [Unknown]
  - Device information output issue [Unknown]
  - Drug ineffective [Unknown]
